FAERS Safety Report 8427636-5 (Version None)
Quarter: 2012Q2

REPORT INFORMATION
  Report Type: 
  Country: None (occurrence: None)
  Receive Date: 20120611
  Receipt Date: 20120518
  Transmission Date: 20120825
  Serious: No
  Sender: FDA-Public Use
  Company Number: US-PFIZER INC-2012133793

PATIENT
  Sex: Female

DRUGS (6)
  1. CARDIZEM [Concomitant]
     Dosage: UNK
  2. LEVOXYL [Suspect]
     Indication: THYROID DISORDER
     Dosage: UNK
     Dates: start: 20090101, end: 20100101
  3. SYNTHROID [Suspect]
     Indication: AUTOIMMUNE THYROIDITIS
     Dosage: 225 UG, UNK
     Dates: start: 19660101, end: 20090101
  4. CYTOMEL [Concomitant]
     Dosage: UNK
  5. DIOVAN [Concomitant]
     Dosage: UNK
  6. SYNTHROID [Suspect]
     Dosage: 112 UG, UNK
     Dates: start: 19660101, end: 20090101

REACTIONS (1)
  - THYROID DISORDER [None]
